FAERS Safety Report 22388632 (Version 1)
Quarter: 2023Q2

REPORT INFORMATION
  Report Type: Spontaneous
  Country: US (occurrence: None)
  Receive Date: 20230529
  Receipt Date: 20230529
  Transmission Date: 20230722
  Serious: Yes (Other)
  Sender: FDA-Public Use
  Company Number: None

PATIENT
  Age: 53 Year
  Sex: Female
  Weight: 67.95 kg

DRUGS (11)
  1. LIDOCAINE [Suspect]
     Active Substance: LIDOCAINE
     Indication: Analgesic therapy
     Dosage: OTHER QUANTITY : 1 PATCH(ES);?OTHER FREQUENCY : ONE TIME USAGE;?
     Route: 062
     Dates: start: 20230305, end: 20230308
  2. Lisinopril 10mg QD [Concomitant]
  3. Levothyroxine 25mcg QD [Concomitant]
  4. Oxycodone 30mg TID PRN [Concomitant]
  5. Lasix PRN [Concomitant]
  6. Kcl 10meq PRN take with Lasix [Concomitant]
  7. Steroids PRN [Concomitant]
  8. Trolomine 10% topical PRN [Concomitant]
  9. Menthol topical every now + then [Concomitant]
  10. Ibuprofen 100-200mg PRN [Concomitant]
  11. Diphenhyrdramine 12.5-25mg PRN [Concomitant]

REACTIONS (9)
  - Dizziness [None]
  - Headache [None]
  - Eye pain [None]
  - Heart rate decreased [None]
  - Muscle twitching [None]
  - Incorrect product administration duration [None]
  - Toxicity to various agents [None]
  - Methaemoglobinaemia [None]
  - Feeling abnormal [None]

NARRATIVE: CASE EVENT DATE: 20230308
